FAERS Safety Report 6204436-8 (Version None)
Quarter: 2009Q2

REPORT INFORMATION
  Report Type: 
  Country: None (occurrence: None)
  Receive Date: 20090527
  Receipt Date: 20090515
  Transmission Date: 20091009
  Serious: Yes (Hospitalization)
  Sender: FDA-Public Use
  Company Number: FR-PFIZER INC-2009201376

PATIENT
  Age: 61 Year

DRUGS (7)
  1. TAHOR [Suspect]
     Indication: HYPERCHOLESTEROLAEMIA
     Dosage: 1 DF, 1X/DAY
     Route: 048
     Dates: end: 20090201
  2. OLMESARTAN MEDOXOMIL [Suspect]
     Indication: HYPERTENSION
     Dosage: UNK
     Route: 048
     Dates: end: 20090201
  3. PERINDOPRIL ERBUMINE [Concomitant]
     Dosage: 4 MG, UNK
  4. SYMBICORT TURBUHALER ^ASTRAZENECA^ [Concomitant]
  5. NEXIUM [Concomitant]
  6. ZANIDIP [Concomitant]
  7. CALCIDOSE [Concomitant]

REACTIONS (3)
  - HYPOCALCAEMIA [None]
  - MYALGIA [None]
  - RHABDOMYOLYSIS [None]
